FAERS Safety Report 6397069-4 (Version None)
Quarter: 2009Q4

REPORT INFORMATION
  Report Type: 
  Country: None (occurrence: None)
  Receive Date: 20091008
  Receipt Date: 20091008
  Transmission Date: 20100525
  Serious: Yes (Other)
  Sender: FDA-Public Use
  Company Number: None

PATIENT
  Age: 47 Year
  Sex: Male
  Weight: 107.5025 kg

DRUGS (2)
  1. FLOREXITINE 20MG-40MG ? [Suspect]
     Dosage: 20-40MG DAILY PO
     Route: 048
     Dates: start: 20040401, end: 20040601
  2. FLOREXITINE 20MG-40MG ? [Suspect]
     Dosage: 20-40MG DAILY PO
     Route: 048
     Dates: start: 20081101, end: 20090501

REACTIONS (3)
  - ANXIETY [None]
  - OBSESSIVE THOUGHTS [None]
  - PRODUCT SUBSTITUTION ISSUE [None]
